FAERS Safety Report 11939388 (Version 10)
Quarter: 2016Q3

REPORT INFORMATION
  Report Type: Report from Study
  Country: CO (occurrence: CO)
  Receive Date: 20160122
  Receipt Date: 20160704
  Transmission Date: 20161109
  Serious: Yes (Other)
  Sender: FDA-Public Use
  Company Number: CO-ABBVIE-16K-036-1541872-00

PATIENT
  Age: 76 Year
  Sex: Female
  Weight: 55 kg

DRUGS (6)
  1. HUMIRA [Suspect]
     Active Substance: ADALIMUMAB
     Indication: COLITIS ULCERATIVE
     Route: 058
     Dates: start: 20150429, end: 20160315
  2. NITROFURANTOIN. [Suspect]
     Active Substance: NITROFURANTOIN
     Indication: PRODUCT USED FOR UNKNOWN INDICATION
     Route: 065
  3. WINADEINE [Concomitant]
     Indication: PAIN
     Dosage: BY PAIN
  4. FOLIC ACID. [Concomitant]
     Active Substance: FOLIC ACID
     Indication: PRODUCT USED FOR UNKNOWN INDICATION
  5. MESALAZINE [Concomitant]
     Active Substance: MESALAMINE
     Indication: PRODUCT USED FOR UNKNOWN INDICATION
  6. AZATHIOPRINE. [Concomitant]
     Active Substance: AZATHIOPRINE
     Indication: PRODUCT USED FOR UNKNOWN INDICATION

REACTIONS (24)
  - Pseudopolyposis [Unknown]
  - Enterovesical fistula [Unknown]
  - Bladder injury [Unknown]
  - Reduced bladder capacity [Unknown]
  - Brenner tumour [Not Recovered/Not Resolved]
  - Cystitis [Not Recovered/Not Resolved]
  - Drug ineffective [Unknown]
  - Intestinal stenosis [Not Recovered/Not Resolved]
  - Hypertonic bladder [Unknown]
  - Urinary bladder polyp [Not Recovered/Not Resolved]
  - Haemorrhoids [Unknown]
  - Lymphoid tissue hyperplasia [Unknown]
  - Large intestinal ulcer [Not Recovered/Not Resolved]
  - Diarrhoea [Not Recovered/Not Resolved]
  - Peritonitis [Unknown]
  - Gastrointestinal wall thickening [Unknown]
  - Bacterial test positive [Unknown]
  - Large intestinal stenosis [Not Recovered/Not Resolved]
  - Circulatory collapse [Not Recovered/Not Resolved]
  - Anovulvar fistula [Unknown]
  - Vomiting [Not Recovered/Not Resolved]
  - Anal fistula [Not Recovered/Not Resolved]
  - Bladder hyperaemia [Unknown]
  - Large intestine polyp [Unknown]

NARRATIVE: CASE EVENT DATE: 20151207
